FAERS Safety Report 24755300 (Version 1)
Quarter: 2024Q4

REPORT INFORMATION
  Report Type: Spontaneous
  Country: PT (occurrence: PT)
  Receive Date: 20241219
  Receipt Date: 20241219
  Transmission Date: 20250115
  Serious: Yes (Other)
  Sender: MYLAN
  Company Number: PT-MYLANLABS-2024M1078237

PATIENT
  Age: 59 Year
  Sex: Female

DRUGS (19)
  1. DULOXETINE [Suspect]
     Active Substance: DULOXETINE
     Indication: Torticollis
     Dosage: UNK
     Route: 065
     Dates: start: 202206, end: 2023
  2. ESCITALOPRAM [Suspect]
     Active Substance: ESCITALOPRAM OXALATE
     Indication: Alcoholism
     Dosage: UNK
     Route: 065
     Dates: start: 20211001
  3. ESCITALOPRAM [Suspect]
     Active Substance: ESCITALOPRAM OXALATE
     Indication: Alcohol withdrawal syndrome
  4. ESCITALOPRAM [Suspect]
     Active Substance: ESCITALOPRAM OXALATE
     Indication: Alcohol detoxification
  5. AMISULPRIDE [Suspect]
     Active Substance: AMISULPRIDE
     Indication: Alcoholism
     Dosage: UNK
     Route: 065
     Dates: start: 202110, end: 202202
  6. AMISULPRIDE [Suspect]
     Active Substance: AMISULPRIDE
     Indication: Alcohol detoxification
  7. AMISULPRIDE [Suspect]
     Active Substance: AMISULPRIDE
     Indication: Alcohol withdrawal syndrome
  8. PREGABALIN [Suspect]
     Active Substance: PREGABALIN
     Indication: Torticollis
     Dosage: UNK
     Route: 065
     Dates: start: 202206
  9. LORAZEPAM [Suspect]
     Active Substance: LORAZEPAM
     Indication: Alcoholism
     Dosage: UNK
     Route: 065
     Dates: start: 20211001
  10. LORAZEPAM [Suspect]
     Active Substance: LORAZEPAM
     Indication: Alcohol withdrawal syndrome
  11. LORAZEPAM [Suspect]
     Active Substance: LORAZEPAM
     Indication: Alcohol detoxification
  12. TOPAMAX [Suspect]
     Active Substance: TOPIRAMATE
     Indication: Alcohol withdrawal syndrome
     Dosage: UNK
     Route: 048
     Dates: start: 20211001
  13. TOPAMAX [Suspect]
     Active Substance: TOPIRAMATE
     Indication: Alcohol detoxification
  14. DIAZEPAM [Suspect]
     Active Substance: DIAZEPAM
     Indication: Alcoholism
     Dosage: UNK
     Route: 065
     Dates: start: 20211001
  15. DIAZEPAM [Suspect]
     Active Substance: DIAZEPAM
     Indication: Alcohol detoxification
  16. DIAZEPAM [Suspect]
     Active Substance: DIAZEPAM
     Indication: Alcohol withdrawal syndrome
  17. TIAPRIDE [Suspect]
     Active Substance: TIAPRIDE
     Indication: Alcoholism
     Dosage: UNK
     Route: 065
     Dates: start: 20211001, end: 202202
  18. TIAPRIDE [Suspect]
     Active Substance: TIAPRIDE
     Indication: Alcohol withdrawal syndrome
  19. TRIHEXYPHENIDYL [Suspect]
     Active Substance: TRIHEXYPHENIDYL
     Indication: Torticollis
     Dosage: UNK
     Route: 065
     Dates: start: 202206

REACTIONS (3)
  - Torticollis [Unknown]
  - Drug intolerance [Unknown]
  - Off label use [Unknown]

NARRATIVE: CASE EVENT DATE: 20211001
